FAERS Safety Report 13553531 (Version 3)
Quarter: 2019Q1

REPORT INFORMATION
  Report Type: Spontaneous
  Country: GR (occurrence: GR)
  Receive Date: 20170517
  Receipt Date: 20190129
  Transmission Date: 20190417
  Serious: Yes (Other)
  Sender: FDA-Public Use
  Company Number: ALCN2017GR003288

PATIENT
  Age: 78 Year
  Sex: Female

DRUGS (7)
  1. SIMBRINZA [Suspect]
     Active Substance: BRIMONIDINE TARTRATE\BRINZOLAMIDE
     Indication: INTRAOCULAR PRESSURE TEST ABNORMAL
     Dosage: UNK
     Route: 047
     Dates: start: 2016
  2. DIOVAN [Concomitant]
     Active Substance: VALSARTAN
     Indication: INTRAOCULAR PRESSURE TEST ABNORMAL
     Route: 065
  3. LEXOTANIL [Concomitant]
     Active Substance: BROMAZEPAM
     Indication: INTRAOCULAR PRESSURE TEST ABNORMAL
     Route: 065
  4. TENORMIN [Concomitant]
     Active Substance: ATENOLOL
     Indication: INTRAOCULAR PRESSURE TEST ABNORMAL
     Route: 065
  5. GELTIM [Concomitant]
     Active Substance: TIMOLOL MALEATE
     Indication: INTRAOCULAR PRESSURE TEST ABNORMAL
     Dosage: 1 GTT, QD (MORNING)
     Route: 065
  6. PLACOL [Concomitant]
     Active Substance: SIMVASTATIN
     Indication: INTRAOCULAR PRESSURE TEST ABNORMAL
     Route: 065
  7. GANFORT [Concomitant]
     Active Substance: BIMATOPROST\TIMOLOL
     Indication: INTRAOCULAR PRESSURE TEST ABNORMAL
     Dosage: 1 GTT, QHS
     Route: 065

REACTIONS (3)
  - Arrhythmia [Recovered/Resolved]
  - Dyspnoea [Recovered/Resolved]
  - Product quality issue [Unknown]
